FAERS Safety Report 6590819-3 (Version None)
Quarter: 2010Q1

REPORT INFORMATION
  Report Type: 
  Country: None (occurrence: None)
  Receive Date: 20100219
  Receipt Date: 20100209
  Transmission Date: 20100710
  Serious: Yes (Other)
  Sender: FDA-Public Use
  Company Number: FR-PFIZER INC-2010017376

PATIENT
  Age: 58 Year
  Sex: Male

DRUGS (4)
  1. VIAGRA [Suspect]
     Dosage: UNK
  2. KARDEGIC [Concomitant]
     Dosage: 75 MG, UNK
  3. FLECAINIDE [Concomitant]
     Dosage: 200
  4. LERCAN [Concomitant]
     Dosage: UNK

REACTIONS (1)
  - CARDIAC DISORDER [None]
